FAERS Safety Report 22018460 (Version 2)
Quarter: 2023Q4

REPORT INFORMATION
  Report Type: Report from Study
  Country: US (occurrence: US)
  Receive Date: 20230221
  Receipt Date: 20231204
  Transmission Date: 20240110
  Serious: Yes (Other)
  Sender: FDA-Public Use
  Company Number: US-ABBVIE-4313812

PATIENT
  Sex: Male

DRUGS (2)
  1. IMBRUVICA [Suspect]
     Active Substance: IBRUTINIB
     Indication: Chronic lymphocytic leukaemia
     Route: 048
     Dates: start: 202101, end: 20230621
  2. IMBRUVICA [Suspect]
     Active Substance: IBRUTINIB
     Indication: Chronic lymphocytic leukaemia
     Route: 048

REACTIONS (14)
  - Nerve compression [Unknown]
  - Fatigue [Unknown]
  - White blood cell count increased [Not Recovered/Not Resolved]
  - Dizziness [Recovering/Resolving]
  - Rash [Recovered/Resolved]
  - Onychoclasis [Unknown]
  - Feeling hot [Recovering/Resolving]
  - Headache [Recovered/Resolved]
  - Asthenia [Unknown]
  - Diabetes mellitus [Not Recovered/Not Resolved]
  - Fatigue [Unknown]
  - Hyperhidrosis [Recovering/Resolving]
  - Feeling abnormal [Recovering/Resolving]
  - Emotional disorder [Unknown]

NARRATIVE: CASE EVENT DATE: 20220101
